FAERS Safety Report 17059131 (Version 2)
Quarter: 2019Q4

REPORT INFORMATION
  Report Type: Spontaneous
  Country: PT (occurrence: PT)
  Receive Date: 20191121
  Receipt Date: 20191121
  Transmission Date: 20200122
  Serious: Yes (Hospitalization)
  Sender: FDA-Public Use
  Company Number: PT-PURACAP PHARMACEUTICAL LLC-2019EPC00327

PATIENT
  Age: 21 Month

DRUGS (2)
  1. IBUPROFEN. [Suspect]
     Active Substance: IBUPROFEN
     Indication: PYREXIA
     Dosage: 7 MG/KG, 3X/DAY (EVERY 8 HOURS)
     Route: 065
  2. PARACETAMOL [Concomitant]
     Active Substance: ACETAMINOPHEN
     Indication: PYREXIA
     Dosage: 15 MG/KG, 3X/DAY (EVERY 8 HOURS)
     Route: 065

REACTIONS (1)
  - Varicella zoster virus infection [Recovering/Resolving]
